FAERS Safety Report 5857702-X (Version None)
Quarter: 2008Q3

REPORT INFORMATION
  Report Type: 
  Country: None (occurrence: None)
  Receive Date: 20080826
  Receipt Date: 20080416
  Transmission Date: 20090109
  Serious: No
  Sender: FDA-Public Use
  Company Number: US-BAYER-200820819NA

PATIENT
  Age: 22 Year
  Sex: Female
  Weight: 61 kg

DRUGS (4)
  1. YASMIN [Suspect]
     Indication: CONTRACEPTION
     Route: 048
  2. LEVOTHYROXINE [Concomitant]
     Indication: THYROID DISORDER
  3. VITAMIN E [Concomitant]
  4. FIBER PILLS [Concomitant]

REACTIONS (3)
  - DECREASED APPETITE [None]
  - DEPRESSION [None]
  - PELVIC PAIN [None]
